FAERS Safety Report 8842170 (Version 4)
Quarter: 2012Q4

REPORT INFORMATION
  Report Type: 
  Country: CA (occurrence: CA)
  Receive Date: 20121016
  Receipt Date: 20121107
  Transmission Date: 20130627
  Serious: Yes (Hospitalization, Other)
  Sender: FDA-Public Use
  Company Number: PHHY2012CA083946

PATIENT
  Age: 68 Year
  Sex: Female

DRUGS (3)
  1. SANDOSTATIN [Suspect]
     Indication: NEUROENDOCRINE TUMOUR
     Dosage: UNK UKN, TID
     Route: 058
     Dates: start: 20120920
  2. SANDOSTATIN LAR [Suspect]
     Indication: NEUROENDOCRINE TUMOUR
     Dosage: 20 mg, every 4 weeks
     Route: 030
     Dates: start: 20120920
  3. SANDOSTATIN LAR [Suspect]
     Dosage: 20 mg, every 4 weeks
     Route: 030
     Dates: start: 20121020

REACTIONS (5)
  - Cancer pain [Recovering/Resolving]
  - Carcinoid crisis [Recovering/Resolving]
  - Cough [Recovering/Resolving]
  - Dyspnoea [Recovering/Resolving]
  - Diarrhoea [Recovering/Resolving]
